FAERS Safety Report 21819074 (Version 1)
Quarter: 2023Q1

REPORT INFORMATION
  Report Type: Spontaneous
  Country: CN (occurrence: CN)
  Receive Date: 20230104
  Receipt Date: 20230104
  Transmission Date: 20230418
  Serious: Yes (Hospitalization)
  Sender: FDA-Public Use
  Company Number: CN-PFIZER INC-PV202300000128

PATIENT
  Age: 8 Year
  Sex: Female
  Weight: 30 kg

DRUGS (3)
  1. ZYVOX [Suspect]
     Active Substance: LINEZOLID
     Indication: Urinary tract infection enterococcal
     Dosage: 0.3 G, 3X/DAY
     Route: 048
     Dates: start: 20220115, end: 20220129
  2. ZYVOX [Suspect]
     Active Substance: LINEZOLID
     Dosage: 0.3 G, 2X/DAY
     Route: 048
     Dates: start: 20220130
  3. CEFTAZIDIME [Concomitant]
     Active Substance: CEFTAZIDIME
     Indication: Pneumonia
     Dosage: 1 G, 2X/DAY
     Route: 041
     Dates: start: 20220119, end: 20220127

REACTIONS (7)
  - Platelet count decreased [Recovered/Resolved]
  - Rash [Recovered/Resolved]
  - Hepatic function abnormal [Recovering/Resolving]
  - Myocardial necrosis marker increased [Recovered/Resolved]
  - Pyrexia [Recovered/Resolved]
  - Mucosal ulceration [Recovering/Resolving]
  - White blood cell count decreased [Recovered/Resolved]

NARRATIVE: CASE EVENT DATE: 20220125
